FAERS Safety Report 6763849-6 (Version None)
Quarter: 2010Q2

REPORT INFORMATION
  Report Type: 
  Country: None (occurrence: None)
  Receive Date: 20100608
  Receipt Date: 20100601
  Transmission Date: 20101027
  Serious: Yes (Death, Hospitalization)
  Sender: FDA-Public Use
  Company Number: 100685

PATIENT
  Age: 14 Year
  Sex: Female

DRUGS (1)
  1. ETOPOSIDE [Suspect]
     Indication: EWING'S SARCOMA
     Dosage: IV
     Route: 042
     Dates: start: 20100211, end: 20100215

REACTIONS (21)
  - BRAIN COMPRESSION [None]
  - BRAIN HERNIATION [None]
  - CEREBRAL INFARCTION [None]
  - CEREBRAL THROMBOSIS [None]
  - DEPRESSED LEVEL OF CONSCIOUSNESS [None]
  - HYDROCEPHALUS [None]
  - LUNG INFECTION [None]
  - LUNG INFILTRATION [None]
  - LUNG NEOPLASM [None]
  - NAUSEA [None]
  - NEUTROPENIA [None]
  - PLEURAL EFFUSION [None]
  - PNEUMOTHORAX [None]
  - PULSE PRESSURE INCREASED [None]
  - PUPILLARY REFLEX IMPAIRED [None]
  - PUPILS UNEQUAL [None]
  - SEPSIS [None]
  - SOMNOLENCE [None]
  - STEM CELL TRANSPLANT [None]
  - VOMITING [None]
  - ZYGOMYCOSIS [None]
